FAERS Safety Report 20975056 (Version 1)
Quarter: 2022Q2

REPORT INFORMATION
  Report Type: Spontaneous
  Country: US (occurrence: US)
  Receive Date: 20220617
  Receipt Date: 20220617
  Transmission Date: 20220720
  Serious: No
  Sender: FDA-Public Use
  Company Number: US-GLAXOSMITHKLINE-US2022AMR093552

PATIENT

DRUGS (1)
  1. NUCALA [Suspect]
     Active Substance: MEPOLIZUMAB
     Indication: Chronic rhinosinusitis with nasal polyps
     Dosage: UNK Q4WK
     Dates: start: 202203

REACTIONS (4)
  - Pruritus [Unknown]
  - Alopecia [Unknown]
  - Arthralgia [Unknown]
  - Insomnia [Unknown]
